FAERS Safety Report 6784762-4 (Version None)
Quarter: 2010Q2

REPORT INFORMATION
  Report Type: 
  Country: None (occurrence: None)
  Receive Date: 20100622
  Receipt Date: 20100609
  Transmission Date: 20101027
  Serious: Yes (Other)
  Sender: FDA-Public Use
  Company Number: PHHY2010US15771

PATIENT
  Sex: Female

DRUGS (6)
  1. TEKTURNA [Suspect]
     Dosage: 150 MG, UNK
     Dates: start: 20100301
  2. DIAZIDE [Suspect]
  3. NORVASC [Suspect]
  4. PREVACID [Concomitant]
  5. TIAZAC [Concomitant]
  6. CRESTOR [Concomitant]

REACTIONS (5)
  - BASEDOW'S DISEASE [None]
  - COUGH [None]
  - HYPERTENSION [None]
  - LIMB INJURY [None]
  - OEDEMA PERIPHERAL [None]
